FAERS Safety Report 9555649 (Version 1)
Quarter: 2013Q3

REPORT INFORMATION
  Report Type: Spontaneous
  Country: US (occurrence: None)
  Receive Date: 20130724
  Receipt Date: 20130724
  Transmission Date: 20140515
  Serious: Yes (Other)
  Sender: FDA-Public Use
  Company Number: PHEH2013US005240

PATIENT
  Sex: Female
  Weight: 70.3 kg

DRUGS (11)
  1. GILENYA (FINGOLIMOD) CAPSULE, 0.5MG [Suspect]
     Route: 048
  2. NUVIGIL (ARMODAFINIL) TABLET [Concomitant]
  3. VITAMIN B-12 (CYANOCOBALAMIN) [Concomitant]
  4. BIOTIN (BIOTIN) [Concomitant]
  5. SELENIUM (SELENIUM) [Concomitant]
  6. CLARITIN (LORATADINE) [Concomitant]
  7. MULTIVIT (VITAMINS NOS) [Concomitant]
  8. IMITREX SUMATRIPTAN SUCCINATE) [Concomitant]
  9. GABAPENTIN (GABAPENTIN) [Concomitant]
  10. NASONEX (MOMETASONE FUROATE) [Concomitant]
  11. TOPAMAX (TOPIRAMATE) [Concomitant]

REACTIONS (2)
  - Infectious mononucleosis [None]
  - Splenomegaly [None]
